FAERS Safety Report 4751382-2 (Version None)
Quarter: 2005Q3

REPORT INFORMATION
  Report Type: 
  Country: None (occurrence: None)
  Receive Date: 20050823
  Receipt Date: 20050823
  Transmission Date: 20060218
  Serious: Yes (Hospitalization, Disabling)
  Sender: FDA-Public Use
  Company Number: None

PATIENT
  Sex: Female
  Weight: 63.5036 kg

DRUGS (3)
  1. NARDIL [Suspect]
     Indication: AGORAPHOBIA
     Dosage: 90 MGS    6 X PER DAY  PO
     Route: 048
     Dates: start: 19880501, end: 20040204
  2. NARDIL [Suspect]
     Indication: ANXIETY
     Dosage: 90 MGS    6 X PER DAY  PO
     Route: 048
     Dates: start: 19880501, end: 20040204
  3. NARDIL [Suspect]
     Indication: PANIC DISORDER
     Dosage: 90 MGS    6 X PER DAY  PO
     Route: 048
     Dates: start: 19880501, end: 20040204

REACTIONS (21)
  - ACTIVITIES OF DAILY LIVING IMPAIRED [None]
  - AMNESIA [None]
  - ANXIETY [None]
  - CONFUSIONAL STATE [None]
  - CRYING [None]
  - DEPERSONALISATION [None]
  - DEPRESSION [None]
  - DISSOCIATION [None]
  - DYSARTHRIA [None]
  - FATIGUE [None]
  - FEAR [None]
  - GAIT DISTURBANCE [None]
  - IMPAIRED WORK ABILITY [None]
  - LOSS OF EMPLOYMENT [None]
  - PANIC ATTACK [None]
  - PARANOIA [None]
  - PERSONALITY CHANGE [None]
  - PHARMACEUTICAL PRODUCT COMPLAINT [None]
  - POOR QUALITY DRUG ADMINISTERED [None]
  - SOCIAL FEAR [None]
  - SUICIDAL IDEATION [None]
